FAERS Safety Report 9262859 (Version 1)
Quarter: 2013Q2

REPORT INFORMATION
  Report Type: Spontaneous
  Country: FR (occurrence: FR)
  Receive Date: 20130430
  Receipt Date: 20130430
  Transmission Date: 20140414
  Serious: Yes (Other)
  Sender: FDA-Public Use
  Company Number: FR-PFIZER INC-2013129551

PATIENT
  Age: 82 Year
  Sex: Male

DRUGS (2)
  1. VFEND [Suspect]
     Indication: CANDIDA INFECTION
     Dosage: 1 TO 2 INJECTIONS
     Route: 042
  2. VFEND [Suspect]
     Indication: CANDIDA INFECTION
     Dosage: UNK
     Route: 048

REACTIONS (1)
  - Rhabdomyolysis [Unknown]
